FAERS Safety Report 5168518-4 (Version None)
Quarter: 2006Q4

REPORT INFORMATION
  Report Type: 
  Country: None (occurrence: None)
  Receive Date: 20061208
  Receipt Date: 20061108
  Transmission Date: 20070319
  Serious: No
  Sender: FDA-Public Use
  Company Number: BE-BOEHRINGER INGELHEIM PHARMACEUTICALS, INC.-2006-DE-05991BY

PATIENT
  Age: 70 Year
  Sex: Female

DRUGS (3)
  1. KINZALKOMB [Suspect]
     Indication: HYPERTENSION
     Route: 048
     Dates: start: 20040101, end: 20060915
  2. ZANIDIP [Concomitant]
     Indication: HYPERTENSION
     Route: 048
     Dates: start: 20041001
  3. CARDIOASPIRINE [Concomitant]
     Indication: THROMBOSIS PROPHYLAXIS
     Route: 048

REACTIONS (3)
  - BLOOD UREA INCREASED [None]
  - POLYDIPSIA [None]
  - POLYURIA [None]
